FAERS Safety Report 6193618-X (Version None)
Quarter: 2009Q2

REPORT INFORMATION
  Report Type: 
  Country: None (occurrence: None)
  Receive Date: 20090514
  Receipt Date: 20090507
  Transmission Date: 20091009
  Serious: Yes (Hospitalization)
  Sender: FDA-Public Use
  Company Number: CHNY2009NZ01783

PATIENT
  Age: 16 Year
  Sex: Male

DRUGS (1)
  1. HYOSCINE HBR HYT [Suspect]
     Indication: DROOLING
     Dosage: 1 PATCH EVERY 4 DAYS, TRANSDERMAL
     Route: 062
     Dates: start: 20090306, end: 20090325

REACTIONS (5)
  - ABDOMINAL PAIN [None]
  - DYSURIA [None]
  - MUSCLE SPASMS [None]
  - OFF LABEL USE [None]
  - STRESS [None]
